FAERS Safety Report 19034081 (Version 1)
Quarter: 2021Q1

REPORT INFORMATION
  Report Type: Spontaneous
  Country: FR (occurrence: FR)
  Receive Date: 20210319
  Receipt Date: 20210319
  Transmission Date: 20210420
  Serious: Yes (Hospitalization, Other)
  Sender: FDA-Public Use
  Company Number: FR-INDIVIOR EUROPE LIMITED-INDV-128875-2021

PATIENT

DRUGS (2)
  1. SERESTA [Suspect]
     Active Substance: OXAZEPAM
     Indication: PRODUCT USED FOR UNKNOWN INDICATION
     Dosage: UNK
     Route: 065
     Dates: start: 202101, end: 202101
  2. SUBUTEX [Suspect]
     Active Substance: BUPRENORPHINE HYDROCHLORIDE
     Indication: PRODUCT USED FOR UNKNOWN INDICATION
     Dosage: UNK
     Route: 065
     Dates: start: 202101, end: 202101

REACTIONS (4)
  - Drug abuse [Not Recovered/Not Resolved]
  - Rhabdomyolysis [Recovering/Resolving]
  - Suicide attempt [Recovered/Resolved]
  - Multiple injuries [Recovered/Resolved]

NARRATIVE: CASE EVENT DATE: 202101
